FAERS Safety Report 16361831 (Version 1)
Quarter: 2019Q2

REPORT INFORMATION
  Report Type: Spontaneous
  Country: US (occurrence: US)
  Receive Date: 20190528
  Receipt Date: 20190528
  Transmission Date: 20190711
  Serious: No
  Sender: FDA-Public Use
  Company Number: US-PFIZER INC-2019221050

PATIENT
  Age: 78 Year

DRUGS (2)
  1. VICODIN [Suspect]
     Active Substance: ACETAMINOPHEN\HYDROCODONE BITARTRATE
     Dosage: UNK
  2. QUINAPRIL. [Suspect]
     Active Substance: QUINAPRIL
     Dosage: UNK

REACTIONS (1)
  - Drug hypersensitivity [Unknown]
